FAERS Safety Report 10553094 (Version 1)
Quarter: 2014Q4

REPORT INFORMATION
  Report Type: Spontaneous
  Country: US (occurrence: US)
  Receive Date: 20141030
  Receipt Date: 20141030
  Transmission Date: 20150529
  Serious: Yes (Hospitalization)
  Sender: FDA-Public Use
  Company Number: PHHY2014US138111

PATIENT
  Age: 53 Year
  Sex: Male

DRUGS (1)
  1. CITALOPRAM [Suspect]
     Active Substance: CITALOPRAM HYDROBROMIDE
     Indication: PRODUCT USED FOR UNKNOWN INDICATION
     Dosage: 2400 MG, UNK
     Route: 065

REACTIONS (15)
  - Non-cardiogenic pulmonary oedema [Recovered/Resolved]
  - Mental status changes [Recovered/Resolved]
  - Acute respiratory distress syndrome [Recovered/Resolved]
  - Electrocardiogram QT prolonged [Recovered/Resolved]
  - Metabolic acidosis [Recovered/Resolved]
  - Hypoxia [Recovered/Resolved]
  - Blood pressure decreased [Recovered/Resolved]
  - Generalised tonic-clonic seizure [Recovered/Resolved]
  - Serotonin syndrome [Recovered/Resolved]
  - Somnolence [Recovered/Resolved]
  - Muscle rigidity [Recovered/Resolved]
  - Respiratory acidosis [Recovered/Resolved]
  - Myoclonus [Recovered/Resolved]
  - Hyperreflexia [Recovered/Resolved]
  - Overdose [Unknown]
